FAERS Safety Report 4727506-X (Version None)
Quarter: 2005Q3

REPORT INFORMATION
  Report Type: 
  Country: None (occurrence: None)
  Receive Date: 20050727
  Receipt Date: 20050727
  Transmission Date: 20060218
  Serious: Yes (Hospitalization)
  Sender: FDA-Public Use
  Company Number: None

PATIENT
  Age: 32 Year
  Sex: Male
  Weight: 68.0396 kg

DRUGS (1)
  1. PHENERGAN [Suspect]
     Dates: start: 20011216, end: 20011216

REACTIONS (4)
  - ARTERIAL DISORDER [None]
  - FINGER AMPUTATION [None]
  - GANGRENE [None]
  - SKIN ATROPHY [None]
